FAERS Safety Report 6571894-9 (Version None)
Quarter: 2010Q1

REPORT INFORMATION
  Report Type: 
  Country: None (occurrence: None)
  Receive Date: 20100205
  Receipt Date: 20100202
  Transmission Date: 20100710
  Serious: Yes (Other)
  Sender: FDA-Public Use
  Company Number: IE-ROCHE-657291

PATIENT
  Sex: Female

DRUGS (4)
  1. RIVOTRIL [Suspect]
     Indication: ANXIETY
     Route: 048
     Dates: start: 20080301, end: 20091101
  2. QUETIAPINE [Suspect]
     Indication: SCHIZOPHRENIA
     Dosage: DRUG NAME REPORTED AS: SEROQUEL FILM-COATED.
     Route: 048
  3. DEPIXOL [Concomitant]
     Dosage: DRUG NAME REPORTED AS DEPIXOL 20 MG/ML SOLUTION FOR INJECTION.
     Route: 030
  4. MIRTAZAPINE [Concomitant]
     Route: 048

REACTIONS (3)
  - DEPRESSION [None]
  - HYPOAESTHESIA [None]
  - SOMATIC HALLUCINATION [None]
